FAERS Safety Report 13955613 (Version 1)
Quarter: 2017Q3

REPORT INFORMATION
  Report Type: Spontaneous
  Country: US (occurrence: US)
  Receive Date: 20170911
  Receipt Date: 20170911
  Transmission Date: 20171128
  Serious: No
  Sender: FDA-Public Use
  Company Number: US-GLAXOSMITHKLINE-US2017139213

PATIENT
  Age: 91 Year
  Sex: Female

DRUGS (2)
  1. FLOVENT DISKUS [Concomitant]
     Active Substance: FLUTICASONE PROPIONATE
  2. BREO ELLIPTA [Suspect]
     Active Substance: FLUTICASONE FUROATE\VILANTEROL TRIFENATATE
     Indication: PRODUCT USED FOR UNKNOWN INDICATION
     Dosage: UNK

REACTIONS (2)
  - Circumstance or information capable of leading to medication error [Recovered/Resolved]
  - Product packaging confusion [Recovered/Resolved]
